FAERS Safety Report 16033978 (Version 2)
Quarter: 2019Q1

REPORT INFORMATION
  Report Type: Spontaneous
  Country: US (occurrence: US)
  Receive Date: 20190305
  Receipt Date: 20190321
  Transmission Date: 20190418
  Serious: Yes (Hospitalization, Other)
  Sender: FDA-Public Use
  Company Number: US-AMGEN-USASP2019030896

PATIENT
  Age: 87 Year
  Sex: Female

DRUGS (1)
  1. PROLIA [Suspect]
     Active Substance: DENOSUMAB
     Indication: OSTEOPOROSIS POSTMENOPAUSAL
     Dosage: UNK
     Route: 065
     Dates: start: 2016

REACTIONS (5)
  - Cholelithiasis [Unknown]
  - Cholecystitis infective [Unknown]
  - Pneumonia [Unknown]
  - Septic shock [Unknown]
  - Fall [Unknown]

NARRATIVE: CASE EVENT DATE: 201807
